FAERS Safety Report 6598681-X (Version None)
Quarter: 2010Q1

REPORT INFORMATION
  Report Type: 
  Country: None (occurrence: None)
  Receive Date: 20100224
  Receipt Date: 20100212
  Transmission Date: 20100710
  Serious: Yes (Other)
  Sender: FDA-Public Use
  Company Number: ZA-PFIZER INC-2010018819

PATIENT

DRUGS (1)
  1. PRANDIN [Suspect]
     Indication: LABOUR INDUCTION
     Dosage: 2 MG, EVERY 4 HRS
     Route: 064
     Dates: start: 20100208

REACTIONS (1)
  - BRAIN INJURY [None]
